FAERS Safety Report 5637265-4 (Version None)
Quarter: 2008Q1

REPORT INFORMATION
  Report Type: 
  Country: None (occurrence: None)
  Receive Date: 20080225
  Receipt Date: 20071116
  Transmission Date: 20080703
  Serious: Yes (Hospitalization)
  Sender: FDA-Public Use
  Company Number: US-BRISTOL-MYERS SQUIBB COMPANY-13985072

PATIENT
  Sex: Female

DRUGS (1)
  1. KENALOG [Suspect]

REACTIONS (3)
  - CANDIDIASIS [None]
  - MENORRHAGIA [None]
  - OEDEMA [None]
